FAERS Safety Report 8875932 (Version 1)
Quarter: 2012Q4

REPORT INFORMATION
  Report Type: 
  Country: RU (occurrence: RU)
  Receive Date: 20121023
  Receipt Date: 20121023
  Transmission Date: 20130627
  Serious: Yes (Other)
  Sender: FDA-Public Use
  Company Number: RU-GLAXOSMITHKLINE-B0837685A

PATIENT
  Age: 81 Year
  Sex: Male

DRUGS (10)
  1. ARIXTRA [Suspect]
     Indication: ACUTE CORONARY SYNDROME
     Dosage: 2.5MG per day
     Route: 065
     Dates: start: 20120917, end: 20121001
  2. AMOXICLAV [Concomitant]
     Route: 065
  3. CEFTRIAXON [Concomitant]
     Route: 065
  4. BETALOC [Concomitant]
     Route: 065
  5. LISINOPRIL [Concomitant]
     Route: 065
  6. CARVEDILOL [Concomitant]
     Route: 065
  7. SPIRONOLACTONE [Concomitant]
     Route: 065
  8. ASPIRIN [Concomitant]
     Route: 065
  9. CLOPIDOGREL [Concomitant]
     Route: 065
  10. HYPOTHIAZIDE [Concomitant]
     Route: 065

REACTIONS (3)
  - Glomerular filtration rate decreased [Recovering/Resolving]
  - Blood creatinine increased [Recovering/Resolving]
  - Abdominal pain [Unknown]
